FAERS Safety Report 10573244 (Version 1)
Quarter: 2014Q4

REPORT INFORMATION
  Report Type: Spontaneous
  Country: US (occurrence: None)
  Receive Date: 20141030
  Receipt Date: 20141030
  Transmission Date: 20150529
  Serious: Yes (Other)
  Sender: FDA-Public Use
  Company Number: PHEH2014US017221

PATIENT
  Age: 65 Year
  Sex: Male

DRUGS (16)
  1. VITAMIN D3 ( COLECALCIFEROL) [Concomitant]
  2. VITAMIN C ( ASCORBIC ACID) [Concomitant]
  3. XARELTO ( RIVAROXABAN) [Concomitant]
  4. METHYLPREDNISOLONE. [Concomitant]
     Active Substance: METHYLPREDNISOLONE
  5. CO Q10 ( UBIDECARENONE) [Concomitant]
  6. ACYCLOVIR ( ACICLOVIR) [Concomitant]
  7. ASPIRIN. [Concomitant]
     Active Substance: ASPIRIN
  8. FISH OIL [Concomitant]
     Active Substance: FISH OIL
  9. ZOMETA [Suspect]
     Active Substance: ZOLEDRONIC ACID
     Indication: PRODUCT USED FOR UNKNOWN INDICATION
  10. REVLIMID [Suspect]
     Active Substance: LENALIDOMIDE
     Indication: PLASMA CELL MYELOMA
     Dosage: 10 MG, 21 IN 21 DAY, ORAL
     Route: 048
     Dates: start: 20130620, end: 20140208
  11. ALPHA LIPOIC ACID (THIOCTIC ACID) [Concomitant]
  12. NEPHROVITE (ASCORBIC ACID, BIOTIN, CALCIUM PANTOTHENATE, CYANOCOBALAMIN, FOLIC ACID, NICOTINAMIDE, PYRIDOXINE HYDROCHLORIDE, RIBOFLAVIN, THIAMINE HYDROCHLORIDE) [Concomitant]
  13. KLOR-CON ( POTASSIUM CHLORIDE) [Concomitant]
  14. AMOXICILLIN. [Concomitant]
     Active Substance: AMOXICILLIN
  15. LIPITOR/UNK(ATORVASTATIN) [Concomitant]
  16. VITAMIN B6 ( PYRIDOXINE HYDROCHLORIDE) [Concomitant]

REACTIONS (1)
  - Blood creatinine increased [None]
